FAERS Safety Report 11214757 (Version 1)
Quarter: 2015Q2

REPORT INFORMATION
  Report Type: Spontaneous
  Country: US (occurrence: None)
  Receive Date: 20150622
  Receipt Date: 20150622
  Transmission Date: 20150821
  Serious: Yes (Hospitalization)
  Sender: FDA-Public Use
  Company Number: 2015JUB00168

PATIENT
  Age: 79 Year
  Sex: Female

DRUGS (9)
  1. LOSARTAN POTASSIUM. [Concomitant]
     Active Substance: LOSARTAN POTASSIUM
  2. ROSUVASTATIN [Concomitant]
     Active Substance: ROSUVASTATIN
  3. HYDROCHLOROTHIAZIDE. [Concomitant]
     Active Substance: HYDROCHLOROTHIAZIDE
  4. LEVOTHYROXINE [Concomitant]
     Active Substance: LEVOTHYROXINE
  5. TORSEMIDE. [Concomitant]
     Active Substance: TORSEMIDE
  6. ATENOLOL. [Concomitant]
     Active Substance: ATENOLOL
  7. ALENDRONATE (ALENDRONATE) UNKNOWN [Suspect]
     Active Substance: ALENDRONATE SODIUM
     Indication: OSTEOPOROSIS
     Route: 048
  8. CLONIDINE. [Concomitant]
     Active Substance: CLONIDINE
  9. VITAMIN D (DIETARY SUPPLEMENT) [Concomitant]

REACTIONS (8)
  - Nausea [None]
  - Decreased appetite [None]
  - Glomerulosclerosis [None]
  - Focal segmental glomerulosclerosis [None]
  - Nephrotic syndrome [None]
  - Tremor [None]
  - Acute kidney injury [None]
  - Azotaemia [None]
